FAERS Safety Report 6650318-7 (Version None)
Quarter: 2010Q1

REPORT INFORMATION
  Report Type: 
  Country: None (occurrence: None)
  Receive Date: 20100325
  Receipt Date: 20100315
  Transmission Date: 20100710
  Serious: Yes (Hospitalization, Other)
  Sender: FDA-Public Use
  Company Number: PHHY2010BR15608

PATIENT
  Sex: Female

DRUGS (1)
  1. FORASEQ [Suspect]

REACTIONS (3)
  - ARRHYTHMIA [None]
  - EPILEPSY [None]
  - LABYRINTHITIS [None]
